FAERS Safety Report 5188404-3 (Version None)
Quarter: 2006Q4

REPORT INFORMATION
  Report Type: 
  Country: None (occurrence: None)
  Receive Date: 20061221
  Receipt Date: 20060222
  Transmission Date: 20070319
  Serious: Yes (Hospitalization, Congenital Anomaly)
  Sender: FDA-Public Use
  Company Number: BR-SHR-BR-2006-003629

PATIENT
  Age: 1 Day
  Sex: Male
  Weight: 1.7 kg

DRUGS (1)
  1. BETASERON [Suspect]
     Indication: RELAPSING-REMITTING MULTIPLE SCLEROSIS
     Dosage: 500 A?G, EVERY 2D
     Route: 058
     Dates: start: 20040730, end: 20050902

REACTIONS (6)
  - CAESAREAN SECTION [None]
  - DANDY-WALKER SYNDROME [None]
  - DRUG EXPOSURE DURING PREGNANCY [None]
  - ESCHERICHIA URINARY TRACT INFECTION [None]
  - PREGNANCY [None]
  - PREMATURE BABY [None]
